FAERS Safety Report 4703138-4 (Version None)
Quarter: 2005Q2

REPORT INFORMATION
  Report Type: 
  Country: None (occurrence: None)
  Receive Date: 20050629
  Receipt Date: 20050620
  Transmission Date: 20051028
  Serious: Yes (Hospitalization)
  Sender: FDA-Public Use
  Company Number: FR-GLAXOSMITHKLINE-B0385177A

PATIENT
  Age: 32 Year
  Sex: Male

DRUGS (2)
  1. ZINNAT [Suspect]
     Indication: BRONCHITIS
     Dosage: 250MG TWICE PER DAY
     Route: 048
     Dates: start: 20050331, end: 20050407
  2. NUREFLEX [Suspect]
     Indication: BRONCHITIS
     Route: 048
     Dates: start: 20050331, end: 20050407

REACTIONS (9)
  - BLOOD ALKALINE PHOSPHATASE INCREASED [None]
  - BLOOD BILIRUBIN INCREASED [None]
  - CHOLESTASIS [None]
  - GAMMA-GLUTAMYLTRANSFERASE INCREASED [None]
  - HEPATIC ENZYME INCREASED [None]
  - JAUNDICE [None]
  - LIVER DISORDER [None]
  - PROTHROMBIN TIME RATIO ABNORMAL [None]
  - PRURITUS [None]
